FAERS Safety Report 6012254-9 (Version None)
Quarter: 2008Q4

REPORT INFORMATION
  Report Type: 
  Country: None (occurrence: None)
  Receive Date: 20081218
  Receipt Date: 20081215
  Transmission Date: 20090506
  Serious: Yes (Death)
  Sender: FDA-Public Use
  Company Number: HQWYE084119MAR07

PATIENT

DRUGS (3)
  1. GEMTUZUMAB OZOGAMICIN [Suspect]
     Dosage: ACTUAL DOSE = 10 MG
     Route: 042
     Dates: start: 20060223, end: 20060223
  2. GEMTUZUMAB OZOGAMICIN [Suspect]
     Dosage: ACTUAL DOSE= 10MG CUMULATIVE DOSE = 20MG
     Route: 042
     Dates: start: 20060309, end: 20060309
  3. DEXAMETHASONE [Concomitant]
     Dosage: NOT SPECIFIED
     Route: 042
     Dates: start: 20080328

REACTIONS (4)
  - INTERSTITIAL LUNG DISEASE [None]
  - PSEUDOMONAS INFECTION [None]
  - RESPIRATORY FAILURE [None]
  - STAPHYLOCOCCAL SEPSIS [None]
